FAERS Safety Report 11600110 (Version 2)
Quarter: 2017Q4

REPORT INFORMATION
  Report Type: Report from Study
  Country: US (occurrence: US)
  Receive Date: 20151006
  Receipt Date: 20171018
  Transmission Date: 20180320
  Serious: No
  Sender: FDA-Public Use
  Company Number: US-AMGEN-USASP2015032652

PATIENT
  Age: 67 Year
  Sex: Male

DRUGS (2)
  1. PROLIA [Suspect]
     Active Substance: DENOSUMAB
     Indication: PRODUCT USED FOR UNKNOWN INDICATION
     Dosage: UNK
     Route: 065
     Dates: start: 20141107
  2. PROLIA [Suspect]
     Active Substance: DENOSUMAB
     Dosage: UNK
     Route: 065

REACTIONS (5)
  - Gait disturbance [Unknown]
  - Wrong technique in product usage process [Unknown]
  - Back pain [Unknown]
  - Chest pain [Unknown]
  - Neck pain [Unknown]

NARRATIVE: CASE EVENT DATE: 20141108
